FAERS Safety Report 9325272 (Version 27)
Quarter: 2019Q4

REPORT INFORMATION
  Report Type: Report from Study
  Country: CA (occurrence: CA)
  Receive Date: 20130604
  Receipt Date: 20191218
  Transmission Date: 20200122
  Serious: Yes (Hospitalization, Other)
  Sender: FDA-Public Use
  Company Number: CA-ROCHE-1229027

PATIENT
  Age: 61 Year
  Sex: Female
  Weight: 74 kg

DRUGS (33)
  1. RITUXAN [Suspect]
     Active Substance: RITUXIMAB
     Route: 042
     Dates: start: 20160201
  2. ACETAMINOPHEN. [Concomitant]
     Active Substance: ACETAMINOPHEN
     Indication: PREMEDICATION
     Route: 048
     Dates: start: 20130514
  3. ADVAIR HFA [Concomitant]
     Active Substance: FLUTICASONE PROPIONATE\SALMETEROL XINAFOATE
     Route: 065
  4. VENTOLIN [Concomitant]
     Active Substance: ALBUTEROL SULFATE
     Route: 065
  5. LEFLUNOMIDE. [Concomitant]
     Active Substance: LEFLUNOMIDE
  6. XARELTO [Concomitant]
     Active Substance: RIVAROXABAN
  7. COUMADIN [Concomitant]
     Active Substance: WARFARIN SODIUM
  8. NITROGLYCERIN. [Concomitant]
     Active Substance: NITROGLYCERIN
  9. CIPRALEX [Concomitant]
     Active Substance: ESCITALOPRAM OXALATE
     Route: 065
  10. LORAZEPAM. [Concomitant]
     Active Substance: LORAZEPAM
     Route: 065
  11. NITRO [GLYCERYL TRINITRATE] [Concomitant]
     Active Substance: NITROGLYCERIN
     Route: 065
  12. TYLENOL [Concomitant]
     Active Substance: ACETAMINOPHEN
     Route: 065
  13. METHYLPREDNISOLONE. [Concomitant]
     Active Substance: METHYLPREDNISOLONE
     Indication: PREMEDICATION
     Route: 042
     Dates: start: 20130514
  14. PREDNISONE. [Concomitant]
     Active Substance: PREDNISONE
     Route: 065
  15. DIPHENHYDRAMINE HCL [Concomitant]
     Active Substance: DIPHENHYDRAMINE HYDROCHLORIDE
     Indication: PREMEDICATION
     Route: 048
     Dates: start: 20130514
  16. CLONAZEPAM. [Concomitant]
     Active Substance: CLONAZEPAM
     Route: 065
  17. AMLODIPINE [Concomitant]
     Active Substance: AMLODIPINE BESYLATE
     Route: 065
  18. TAZOCIN [Suspect]
     Active Substance: PIPERACILLIN SODIUM\TAZOBACTAM SODIUM
     Indication: INFECTION
     Route: 042
  19. RAMIPRIL. [Concomitant]
     Active Substance: RAMIPRIL
     Route: 065
  20. ARAVA [Concomitant]
     Active Substance: LEFLUNOMIDE
     Route: 065
  21. OXYGEN. [Concomitant]
     Active Substance: OXYGEN
  22. MONTELUKAST [Concomitant]
     Active Substance: MONTELUKAST SODIUM
     Indication: SEASONAL ALLERGY
  23. CODEINE [Concomitant]
     Active Substance: CODEINE
     Route: 065
  24. IMOVANE [Concomitant]
     Active Substance: ZOPICLONE
  25. FUROSEMIDE. [Concomitant]
     Active Substance: FUROSEMIDE
  26. DIGOXIN. [Concomitant]
     Active Substance: DIGOXIN
  27. SALBUTAMOL [Concomitant]
     Active Substance: ALBUTEROL
  28. RITUXAN [Suspect]
     Active Substance: RITUXIMAB
     Indication: RHEUMATOID ARTHRITIS
     Dosage: DATE OF LAST INFUSION: 26/FEB/2016
     Route: 042
     Dates: start: 20130514
  29. LASIX [Concomitant]
     Active Substance: FUROSEMIDE
     Route: 065
  30. ESOMEPRAZOLE. [Concomitant]
     Active Substance: ESOMEPRAZOLE MAGNESIUM
     Route: 065
  31. WARFARIN [Concomitant]
     Active Substance: WARFARIN
     Dosage: 2MG/3MG
     Route: 065
  32. SPIRIVA [Concomitant]
     Active Substance: TIOTROPIUM BROMIDE MONOHYDRATE
     Route: 065
  33. ZOPLICONE [Concomitant]
     Active Substance: ZOPICLONE
     Route: 065

REACTIONS (49)
  - Diarrhoea [Recovering/Resolving]
  - Cellulitis [Unknown]
  - Respiratory rate increased [Unknown]
  - Blood pressure diastolic abnormal [Unknown]
  - Weight increased [Unknown]
  - Retching [Recovered/Resolved]
  - Musculoskeletal disorder [Unknown]
  - Limb deformity [Unknown]
  - Nausea [Unknown]
  - Joint swelling [Recovering/Resolving]
  - Heart rate increased [Unknown]
  - Oxygen saturation abnormal [Recovered/Resolved]
  - Localised infection [Recovered/Resolved]
  - Influenza [Unknown]
  - Benign breast neoplasm [Not Recovered/Not Resolved]
  - Fall [Unknown]
  - Influenza like illness [Not Recovered/Not Resolved]
  - Infusion related reaction [Unknown]
  - Hepatitis [Not Recovered/Not Resolved]
  - Grip strength decreased [Not Recovered/Not Resolved]
  - Pain [Unknown]
  - International normalised ratio increased [Recovered/Resolved]
  - Benign neoplasm of thyroid gland [Not Recovered/Not Resolved]
  - C-reactive protein increased [Unknown]
  - Weight decreased [Unknown]
  - Arthropathy [Unknown]
  - Renal cancer [Unknown]
  - Rheumatoid arthritis [Not Recovered/Not Resolved]
  - Asthenia [Not Recovered/Not Resolved]
  - Musculoskeletal discomfort [Unknown]
  - Musculoskeletal stiffness [Unknown]
  - Blood pressure diastolic abnormal [Unknown]
  - Blood pressure systolic increased [Unknown]
  - Peripheral swelling [Not Recovered/Not Resolved]
  - Nausea [Recovered/Resolved]
  - Blood pressure increased [Recovered/Resolved]
  - Fatigue [Unknown]
  - Vomiting [Unknown]
  - Blood pressure systolic abnormal [Unknown]
  - Nausea [Recovered/Resolved]
  - Neck pain [Not Recovered/Not Resolved]
  - Hypotension [Not Recovered/Not Resolved]
  - Influenza [Unknown]
  - Balance disorder [Recovered/Resolved]
  - Malaise [Unknown]
  - Arthralgia [Unknown]
  - Abdominal discomfort [Unknown]
  - Blood immunoglobulin G decreased [Unknown]
  - Blood pressure increased [Unknown]

NARRATIVE: CASE EVENT DATE: 20130515
